FAERS Safety Report 4402880-2 (Version None)
Quarter: 2004Q3

REPORT INFORMATION
  Report Type: 
  Country: None (occurrence: None)
  Receive Date: 20040720
  Receipt Date: 20040720
  Transmission Date: 20050211
  Serious: Yes (Death)
  Sender: FDA-Public Use
  Company Number: None

PATIENT
  Age: 50 Year
  Sex: Male
  Weight: 77.1 kg

DRUGS (1)
  1. METHOTREXATE [Suspect]
     Indication: GLIOBLASTOMA MULTIFORME
     Dosage: 12 G /M2 X 1 CENTRAL VENOUS ASCESS
     Dates: start: 20040629

REACTIONS (1)
  - COMA [None]
